FAERS Safety Report 21615487 (Version 1)
Quarter: 2022Q4

REPORT INFORMATION
  Report Type: Spontaneous
  Country: CN (occurrence: None)
  Receive Date: 20221118
  Receipt Date: 20221118
  Transmission Date: 20230112
  Serious: Yes (Life-Threatening, Hospitalization)
  Sender: FDA-Public Use
  Company Number: 2022A380604

PATIENT
  Age: 26307 Day
  Sex: Female
  Weight: 62.5 kg

DRUGS (4)
  1. OLAPARIB [Suspect]
     Active Substance: OLAPARIB
     Indication: Ovarian cancer
     Route: 048
     Dates: start: 20221018, end: 20221102
  2. SINTILIMAB [Suspect]
     Active Substance: SINTILIMAB
     Indication: Ovarian cancer
     Route: 041
     Dates: start: 20221018, end: 20221018
  3. NEDAPLATIN [Suspect]
     Active Substance: NEDAPLATIN
     Indication: Ovarian cancer
     Route: 065
     Dates: start: 20221018, end: 20221018
  4. DEXTROSE [Concomitant]
     Active Substance: DEXTROSE
     Indication: Vehicle solution use
     Route: 041
     Dates: start: 20221018, end: 20221018

REACTIONS (3)
  - Granulocyte count decreased [Recovering/Resolving]
  - Platelet count decreased [Recovering/Resolving]
  - Myelosuppression [Unknown]

NARRATIVE: CASE EVENT DATE: 20221101
